FAERS Safety Report 23993346 (Version 1)
Quarter: 2024Q2

REPORT INFORMATION
  Report Type: Report from Study
  Country: US (occurrence: US)
  Receive Date: 20240620
  Receipt Date: 20240620
  Transmission Date: 20240715
  Serious: Yes (Hospitalization)
  Sender: FDA-Public Use
  Company Number: US-GILEAD-2024-0677563

PATIENT
  Age: 36 Year
  Sex: Female

DRUGS (18)
  1. AZTREONAM LYSINE [Suspect]
     Active Substance: AZTREONAM LYSINE
     Indication: Cystic fibrosis
     Dosage: 75 MG, TID (INHALE 75MG VIA NEB THREE TIMES DAILY X 28 DAYS ON THEN 28 DAYS OFF  )
     Route: 055
     Dates: start: 20211007
  2. TRIKAFTA [Concomitant]
     Active Substance: ELEXACAFTOR\IVACAFTOR\TEZACAFTOR
  3. VYVANSE [Concomitant]
     Active Substance: LISDEXAMFETAMINE DIMESYLATE
  4. LEVEMIR [Concomitant]
     Active Substance: INSULIN DETEMIR
  5. ALBUTEROL [Concomitant]
     Active Substance: ALBUTEROL
  6. BUDESONIDE\FORMOTEROL [Concomitant]
     Active Substance: BUDESONIDE\FORMOTEROL
  7. CREON [Concomitant]
     Active Substance: PANCRELIPASE AMYLASE\PANCRELIPASE LIPASE\PANCRELIPASE PROTEASE
  8. DULOXETINE [Concomitant]
     Active Substance: DULOXETINE
  9. BUPROPION [Concomitant]
     Active Substance: BUPROPION
  10. AMLODIPINE [Concomitant]
     Active Substance: AMLODIPINE BESYLATE
  11. FLUTICASONE [Concomitant]
     Active Substance: FLUTICASONE
  12. DOCUSATE [Concomitant]
     Active Substance: DOCUSATE
  13. D3 50 [Concomitant]
  14. CETIRIZINE [Concomitant]
     Active Substance: CETIRIZINE HYDROCHLORIDE
  15. LEVOFLOXACIN [Concomitant]
     Active Substance: LEVOFLOXACIN
  16. CLONAZEPAM [Concomitant]
     Active Substance: CLONAZEPAM
  17. LUBIPROSTONE [Concomitant]
     Active Substance: LUBIPROSTONE
  18. LANTUS [Concomitant]
     Active Substance: INSULIN GLARGINE

REACTIONS (1)
  - Lung disorder [Unknown]
